FAERS Safety Report 15656364 (Version 1)
Quarter: 2018Q4

REPORT INFORMATION
  Report Type: Spontaneous
  Country: ES (occurrence: ES)
  Receive Date: 20181126
  Receipt Date: 20181126
  Transmission Date: 20190205
  Serious: Yes (Other)
  Sender: FDA-Public Use
  Company Number: ES-PFIZER INC-2018483565

PATIENT
  Age: 89 Year
  Sex: Female

DRUGS (4)
  1. LORMETAZEPAM [Interacting]
     Active Substance: LORMETAZEPAM
     Dosage: DAILY
     Route: 048
     Dates: start: 2017, end: 20181009
  2. CLOTIAZEPAM [Interacting]
     Active Substance: CLOTIAZEPAM
     Dosage: DAILY
     Route: 048
     Dates: start: 2017, end: 20181009
  3. LEXATIN [BROMAZEPAM] [Interacting]
     Active Substance: BROMAZEPAM
     Dosage: DAILY
     Route: 048
     Dates: start: 2017, end: 20181009
  4. LORAZEPAM. [Suspect]
     Active Substance: LORAZEPAM
     Dosage: DAILY
     Route: 048
     Dates: start: 2017, end: 20181009

REACTIONS (3)
  - Drug interaction [Recovered/Resolved]
  - Duplicate therapy error [Recovered/Resolved]
  - Withdrawal syndrome [Unknown]

NARRATIVE: CASE EVENT DATE: 2017
